FAERS Safety Report 12474396 (Version 1)
Quarter: 2016Q2

REPORT INFORMATION
  Report Type: Spontaneous
  Country: US (occurrence: None)
  Receive Date: 20160616
  Receipt Date: 20160616
  Transmission Date: 20160815
  Serious: Yes (Disabling)
  Sender: FDA-Public Use
  Company Number: None

PATIENT
  Age: 84 Year
  Sex: Male
  Weight: 74.84 kg

DRUGS (7)
  1. ATENOLOL. [Concomitant]
     Active Substance: ATENOLOL
  2. PREDNISONE. [Concomitant]
     Active Substance: PREDNISONE
  3. VITAMINS [Concomitant]
     Active Substance: VITAMINS
  4. ZINC [Concomitant]
     Active Substance: ZINC\ZINC CHLORIDE
  5. MAGNESIUM [Concomitant]
     Active Substance: MAGNESIUM
  6. CIPROFLOXACIN -750MG RX0727069-10220 WALGREEN [Suspect]
     Active Substance: CIPROFLOXACIN
     Indication: INFECTION
     Dosage: 2 PILLS TWICE DAILY MOUTH
     Route: 048
     Dates: start: 20160519, end: 20160523
  7. CELERY SEED [Concomitant]
     Active Substance: CELERY SEED

REACTIONS (3)
  - Gait disturbance [None]
  - Muscle spasms [None]
  - Malaise [None]

NARRATIVE: CASE EVENT DATE: 20160524
